FAERS Safety Report 7093579-5 (Version None)
Quarter: 2010Q4

REPORT INFORMATION
  Report Type: 
  Country: None (occurrence: None)
  Receive Date: 20101110
  Receipt Date: 20101104
  Transmission Date: 20110411
  Serious: Yes (Hospitalization)
  Sender: FDA-Public Use
  Company Number: CA-ROCHE-729142

PATIENT
  Sex: Male
  Weight: 98.2 kg

DRUGS (7)
  1. BEVACIZUMAB [Suspect]
     Indication: GLIOBLASTOMA
     Dosage: THERAPY:PERMANENTLY DISCONTINUED; STOP DATE REPORTED AS 2010; FORM: INFUSION
     Route: 042
     Dates: start: 20100729
  2. EFFEXOR [Concomitant]
  3. DECADRON [Concomitant]
  4. ADALAT [Concomitant]
  5. RABEPRAZOLE SODIUM [Concomitant]
  6. SYMBICORT [Concomitant]
  7. NEUPOGEN [Concomitant]

REACTIONS (1)
  - MALIGNANT NEOPLASM PROGRESSION [None]
